FAERS Safety Report 18154330 (Version 2)
Quarter: 2020Q3

REPORT INFORMATION
  Report Type: Spontaneous
  Country: US (occurrence: US)
  Receive Date: 20200817
  Receipt Date: 20200904
  Transmission Date: 20201103
  Serious: No
  Sender: FDA-Public Use
  Company Number: NVSC2020US226543

PATIENT
  Age: 47 Year
  Sex: Female

DRUGS (2)
  1. LANACANE [Concomitant]
     Active Substance: BENZOCAINE
     Indication: PAIN
     Dosage: UNK
     Route: 065
  2. VOLTAREN [Suspect]
     Active Substance: DICLOFENAC SODIUM
     Indication: PAIN
     Dosage: UNK, Q2W
     Route: 065

REACTIONS (1)
  - Drug ineffective [Unknown]
